FAERS Safety Report 21812719 (Version 1)
Quarter: 2023Q1

REPORT INFORMATION
  Report Type: Spontaneous
  Country: SE (occurrence: SE)
  Receive Date: 20230103
  Receipt Date: 20230103
  Transmission Date: 20230417
  Serious: Yes (Other)
  Sender: FDA-Public Use
  Company Number: None

PATIENT
  Age: 88 Year
  Sex: Female

DRUGS (1)
  1. SPIRONOLACTONE [Suspect]
     Active Substance: SPIRONOLACTONE
     Dosage: UNK
     Dates: start: 202205

REACTIONS (2)
  - Rash [Unknown]
  - Pruritus [Unknown]

NARRATIVE: CASE EVENT DATE: 20220501
